FAERS Safety Report 12860666 (Version 1)
Quarter: 2016Q4

REPORT INFORMATION
  Report Type: Spontaneous
  Country: FR (occurrence: FR)
  Receive Date: 20161019
  Receipt Date: 20161019
  Transmission Date: 20170207
  Serious: Yes (Hospitalization)
  Sender: FDA-Public Use
  Company Number: FR-MALLINCKRODT-T201605145

PATIENT
  Age: 78 Year
  Sex: Female

DRUGS (5)
  1. ESOMEPRAZOLE [Suspect]
     Active Substance: ESOMEPRAZOLE
     Indication: PRODUCT USED FOR UNKNOWN INDICATION
     Dosage: UNK
     Route: 048
     Dates: start: 20160512
  2. OMNIPAQUE [Suspect]
     Active Substance: IOHEXOL
     Indication: SCAN
     Dosage: UNK UNK, SINGLE
     Route: 042
     Dates: start: 20160519, end: 20160519
  3. TECHNESCAN HDP [Suspect]
     Active Substance: TECHNETIUM TC-99M OXIDRONATE
     Indication: BONE SCAN
     Dosage: UNK UNK, SINGLE
     Route: 042
     Dates: start: 20160520, end: 20160520
  4. CLAMOXYL                           /00249601/ [Suspect]
     Active Substance: AMOXICILLIN
     Indication: PYREXIA
     Dosage: UNK
     Route: 065
     Dates: start: 20160512, end: 20160519
  5. TRAMADOL                           /00599202/ [Concomitant]
     Active Substance: TRAMADOL

REACTIONS (2)
  - Pruritus generalised [Recovered/Resolved]
  - Rash maculo-papular [Recovered/Resolved]

NARRATIVE: CASE EVENT DATE: 20160521
